FAERS Safety Report 7429215-5 (Version None)
Quarter: 2011Q2

REPORT INFORMATION
  Report Type: 
  Country: None (occurrence: None)
  Receive Date: 20110421
  Receipt Date: 20110412
  Transmission Date: 20111010
  Serious: Yes (Other)
  Sender: FDA-Public Use
  Company Number: US-BAXTER-2011BH011987

PATIENT

DRUGS (1)
  1. NALOXONE VIAL [Suspect]
     Indication: OVERDOSE
     Route: 065

REACTIONS (1)
  - CONVULSION [None]
